FAERS Safety Report 6939982-2 (Version None)
Quarter: 2010Q3

REPORT INFORMATION
  Report Type: 
  Country: None (occurrence: None)
  Receive Date: 20100825
  Receipt Date: 20100819
  Transmission Date: 20110219
  Serious: Yes (Other)
  Sender: FDA-Public Use
  Company Number: FR-JNJFOC-20100807120

PATIENT
  Sex: Male

DRUGS (5)
  1. PEPCID COMPLETE [Suspect]
     Indication: DYSPHAGIA
     Route: 048
  2. PEPCID COMPLETE [Suspect]
     Indication: DYSPNOEA
     Route: 048
  3. PEPCID COMPLETE [Suspect]
     Indication: THROAT IRRITATION
     Route: 048
  4. PEPCID COMPLETE [Suspect]
     Indication: ABDOMINAL PAIN UPPER
     Route: 048
  5. AERIUS [Concomitant]
     Route: 048

REACTIONS (1)
  - ANAPHYLACTOID REACTION [None]
